FAERS Safety Report 17139518 (Version 1)
Quarter: 2019Q4

REPORT INFORMATION
  Report Type: Spontaneous
  Country: US (occurrence: US)
  Receive Date: 20191210
  Receipt Date: 20191210
  Transmission Date: 20200122
  Serious: Yes (Hospitalization)
  Sender: FDA-Public Use
  Company Number: None

PATIENT
  Age: 53 Year
  Sex: Female

DRUGS (11)
  1. DICYCLOMINE [Suspect]
     Active Substance: DICYCLOMINE HYDROCHLORIDE
  2. HUMIRA [Suspect]
     Active Substance: ADALIMUMAB
     Indication: CROHN^S DISEASE
     Route: 058
  3. PREDNISONE. [Suspect]
     Active Substance: PREDNISONE
  4. NABUMETONE. [Suspect]
     Active Substance: NABUMETONE
  5. METFORMIN [Suspect]
     Active Substance: METFORMIN HYDROCHLORIDE
  6. MESALAMINE. [Concomitant]
     Active Substance: MESALAMINE
  7. HUMIRA [Suspect]
     Active Substance: ADALIMUMAB
     Indication: PSORIATIC ARTHROPATHY
     Route: 058
  8. OMEPRAZOLE. [Suspect]
     Active Substance: OMEPRAZOLE
  9. CHOLESTYRAMINE. [Suspect]
     Active Substance: CHOLESTYRAMINE
  10. GABAPENIIN [Concomitant]
  11. IBU PROFEN [Concomitant]

REACTIONS (2)
  - Blood count abnormal [None]
  - Transfusion [None]

NARRATIVE: CASE EVENT DATE: 20191204
